FAERS Safety Report 11288116 (Version 1)
Quarter: 2015Q3

REPORT INFORMATION
  Report Type: Spontaneous
  Country: US (occurrence: US)
  Receive Date: 20150721
  Receipt Date: 20150721
  Transmission Date: 20151125
  Serious: No
  Sender: FDA-Public Use
  Company Number: US-UNITED THERAPEUTICS-UNT-2015-004719

PATIENT
  Sex: Female
  Weight: 72.56 kg

DRUGS (1)
  1. TYVASO [Suspect]
     Active Substance: TREPROSTINIL
     Indication: PULMONARY ARTERIAL HYPERTENSION
     Dosage: 18-72, MICROGRAMS, QID
     Dates: start: 20141016

REACTIONS (3)
  - Urinary tract infection [Unknown]
  - Walking distance test abnormal [Unknown]
  - Headache [Unknown]
